FAERS Safety Report 7991040-4 (Version None)
Quarter: 2011Q4

REPORT INFORMATION
  Report Type: 
  Country: None (occurrence: None)
  Receive Date: 20111219
  Receipt Date: 20111209
  Transmission Date: 20120403
  Serious: Yes (Hospitalization)
  Sender: FDA-Public Use
  Company Number: US-BAYER-2011-070298

PATIENT
  Age: 80 Year
  Sex: Female
  Weight: 81.633 kg

DRUGS (15)
  1. OSCAL [Concomitant]
     Indication: MINERAL SUPPLEMENTATION
     Dosage: 600 MG, QD
     Route: 048
  2. SYNTHROID [Concomitant]
     Indication: THYROID THERAPY
     Dosage: 25 MG, QD
     Route: 048
  3. RECOMBINANT PROTEIN OF HUMAN VEGF RECEPTORS (VEGFR1+VEGFR2) [Suspect]
     Indication: AGE-RELATED MACULAR DEGENERATION
     Dosage: 13 DOSES OF VGFT 0.5 MG OR 2.0 MG OR RANIBIZUMAB 0.5 MG (Q4WKS) IN YEAR 1 OF VGFT-OD-0605
     Route: 031
     Dates: start: 20080922, end: 20090824
  4. RECOMBINANT PROTEIN OF HUMAN VEGF RECEPTORS (VEGFR1+VEGFR2) [Suspect]
     Dosage: 5 DOSES OF VGFT 0.5 MG OR 2.0 MG OR RANIBIZUMAB 0.5 MG (Q4WKS/Q12WKS/PRN) IN YEAR 2 OF VGFT-OD-0605
     Route: 031
     Dates: start: 20090924, end: 20100726
  5. RECOMBINANT PROTEIN OF HUMAN VEGF RECEPTORS (VEGFR1+VEGFR2) [Suspect]
     Dosage: 2 MG, PRN
     Route: 031
     Dates: start: 20100726
  6. CENTRUM SILVER [Concomitant]
     Indication: VITAMIN SUPPLEMENTATION
     Dosage: 1 DF, QD
     Route: 048
     Dates: start: 20090408
  7. VITAMIN D [Concomitant]
     Indication: VITAMIN D ABNORMAL
     Dosage: 1 DF, QD
     Route: 048
     Dates: start: 20090408
  8. CYCLOBENZAPRINE [Concomitant]
     Indication: SCOLIOSIS
  9. ADVAIR DISKUS 100/50 [Concomitant]
     Indication: CHRONIC OBSTRUCTIVE PULMONARY DISEASE
  10. ACETYLSALICYLIC ACID SRT [Suspect]
     Indication: THROMBOSIS PROPHYLAXIS
     Dosage: 81 MG, QD
     Route: 048
     Dates: end: 20110624
  11. COZAAR [Concomitant]
     Indication: HYPERTENSION
     Dosage: 100 MG, QD
     Route: 048
  12. DETROL LA [Concomitant]
     Indication: URINARY TRACT INFECTION
     Dosage: 40 MG, QD
     Route: 048
  13. ZOCOR [Concomitant]
     Indication: HYPERLIPIDAEMIA
     Dosage: 40 MG, QD
     Route: 048
  14. DEXILANT [Concomitant]
     Indication: GASTROOESOPHAGEAL REFLUX DISEASE
     Dosage: 600 MG, QD
     Route: 048
     Dates: start: 20110528
  15. MELOXICAM [Concomitant]
     Indication: ARTHRITIS

REACTIONS (1)
  - IRON DEFICIENCY ANAEMIA [None]
